FAERS Safety Report 17893596 (Version 1)
Quarter: 2020Q2

REPORT INFORMATION
  Report Type: Spontaneous
  Country: FR (occurrence: FR)
  Receive Date: 20200615
  Receipt Date: 20200615
  Transmission Date: 20200714
  Serious: Yes (Hospitalization)
  Sender: FDA-Public Use
  Company Number: FR-CADILA HEALTHCARE LIMITED-FR-ZYDUS-025451

PATIENT

DRUGS (6)
  1. TRAMADOL. [Suspect]
     Active Substance: TRAMADOL
     Indication: BACK PAIN
     Dosage: 50 MILLIGRAM
     Route: 048
     Dates: start: 201807, end: 20180724
  2. STRESAM [Concomitant]
     Active Substance: ETIFOXINE
     Indication: ANXIETY
     Dosage: 150 MILLIGRAM,(INTERVAL :1 WEEKS)
     Route: 048
     Dates: start: 2017
  3. DOLIPRANE [Suspect]
     Active Substance: ACETAMINOPHEN
     Indication: BACK PAIN
     Dosage: (),(INTERVAL :1 DAYS)
     Route: 048
     Dates: start: 201807, end: 20180724
  4. KETOPROFENE [Suspect]
     Active Substance: KETOPROFEN
     Indication: BACK PAIN
     Dosage: 300 MILLIGRAM,(INTERVAL :1 WEEKS)
     Route: 048
     Dates: start: 201807, end: 20180724
  5. LAMALINE (ACETAMINOPHEN\CAFFEINE\OPIUM) [Suspect]
     Active Substance: ACETAMINOPHEN\CAFFEINE\OPIUM
     Indication: BACK PAIN
     Dosage: (3)
     Route: 048
     Dates: start: 201807, end: 20180724
  6. IBUPROFEN. [Suspect]
     Active Substance: IBUPROFEN
     Indication: BACK PAIN
     Dosage: 3 DOSAGE FORM,(INTERVAL :1 WEEKS)
     Route: 048
     Dates: start: 201807, end: 20180724

REACTIONS (3)
  - Eosinophilia [Not Recovered/Not Resolved]
  - Pruritus [Recovered/Resolved]
  - Rash maculo-papular [Recovering/Resolving]

NARRATIVE: CASE EVENT DATE: 20180721
